FAERS Safety Report 11906618 (Version 1)
Quarter: 2016Q1

REPORT INFORMATION
  Report Type: Spontaneous
  Country: US (occurrence: US)
  Receive Date: 20160111
  Receipt Date: 20160111
  Transmission Date: 20160526
  Serious: No
  Sender: FDA-Public Use
  Company Number: US-DRREDDYS-USA/USA/15/0050175

PATIENT
  Age: 78 Year
  Sex: Female

DRUGS (2)
  1. ZAFIRLUKAST TABLETS 10 MG + 20 MG [Suspect]
     Active Substance: ZAFIRLUKAST
     Indication: MIGRAINE WITH AURA
     Route: 048
     Dates: start: 20150806, end: 20150806
  2. SYNTHROID [Concomitant]
     Active Substance: LEVOTHYROXINE SODIUM
     Indication: PRODUCT USED FOR UNKNOWN INDICATION
     Route: 065

REACTIONS (9)
  - Chromaturia [Recovered/Resolved]
  - Abdominal pain upper [Recovering/Resolving]
  - Chills [Recovered/Resolved]
  - Nasopharyngitis [Recovered/Resolved]
  - Headache [Recovering/Resolving]
  - Diarrhoea [Recovering/Resolving]
  - Abnormal dreams [Recovering/Resolving]
  - Restlessness [Recovering/Resolving]
  - Anxiety [Recovering/Resolving]

NARRATIVE: CASE EVENT DATE: 20150806
